FAERS Safety Report 6237540-9 (Version None)
Quarter: 2009Q2

REPORT INFORMATION
  Report Type: 
  Country: None (occurrence: None)
  Receive Date: 20090616
  Receipt Date: 20090604
  Transmission Date: 20091009
  Serious: Yes (Other)
  Sender: FDA-Public Use
  Company Number: 2008AL011331

PATIENT
  Age: 62 Year
  Sex: Male

DRUGS (9)
  1. DIGOXIN [Suspect]
     Indication: HEART RATE IRREGULAR
     Dosage: PO
     Route: 048
  2. ASPIRIN [Concomitant]
  3. AMIODARONE HCL [Concomitant]
  4. PLAVIX [Concomitant]
  5. TOPROL-XL [Concomitant]
  6. LIPITOR [Concomitant]
  7. ALTACE [Concomitant]
  8. PERCOCET [Concomitant]
  9. LASIX [Concomitant]

REACTIONS (14)
  - ABASIA [None]
  - ANHEDONIA [None]
  - ANXIETY [None]
  - ATRIAL FIBRILLATION [None]
  - COLD SWEAT [None]
  - DRUG LEVEL ABOVE THERAPEUTIC [None]
  - ECONOMIC PROBLEM [None]
  - HYPOPHAGIA [None]
  - INCORRECT DOSE ADMINISTERED [None]
  - MULTIPLE INJURIES [None]
  - PAIN [None]
  - PALPITATIONS [None]
  - THERAPEUTIC AGENT TOXICITY [None]
  - VISUAL IMPAIRMENT [None]
